FAERS Safety Report 10775344 (Version 1)
Quarter: 2015Q1

REPORT INFORMATION
  Report Type: Spontaneous
  Country: TH (occurrence: None)
  Receive Date: 20150205
  Receipt Date: 20150205
  Transmission Date: 20150721
  Serious: Yes (Other)
  Sender: FDA-Public Use
  Company Number: BD-2015-0059

PATIENT

DRUGS (2)
  1. MIDAZOLAM [Suspect]
     Active Substance: MIDAZOLAM\MIDAZOLAM HYDROCHLORIDE
     Indication: SEDATION
     Route: 042
  2. MEPERIDINE [Suspect]
     Active Substance: MEPERIDINE
     Indication: SEDATION
     Route: 042

REACTIONS (2)
  - Post procedural complication [None]
  - Pancreatitis [None]
